FAERS Safety Report 7933101-1 (Version None)
Quarter: 2011Q4

REPORT INFORMATION
  Report Type: 
  Country: None (occurrence: None)
  Receive Date: 20111122
  Receipt Date: 20111114
  Transmission Date: 20120403
  Serious: Yes (Other)
  Sender: FDA-Public Use
  Company Number: US-AMGEN-USASP2011059982

PATIENT
  Sex: Male

DRUGS (1)
  1. ENBREL [Suspect]
     Indication: PSORIASIS
     Dosage: 50 MG, UNK
     Dates: start: 20070201

REACTIONS (8)
  - DYSPHAGIA [None]
  - IMPAIRED HEALING [None]
  - ARTHRALGIA [None]
  - INCREASED TENDENCY TO BRUISE [None]
  - SENSATION OF FOREIGN BODY [None]
  - DRUG INEFFECTIVE [None]
  - DYSPNOEA [None]
  - PSORIASIS [None]
